FAERS Safety Report 7137093-7 (Version None)
Quarter: 2010Q4

REPORT INFORMATION
  Report Type: 
  Country: None (occurrence: None)
  Receive Date: 20101206
  Receipt Date: 20101129
  Transmission Date: 20110411
  Serious: Yes (Other)
  Sender: FDA-Public Use
  Company Number: DE-AMGEN-DEUSP2010000675

PATIENT

DRUGS (18)
  1. PROLIA [Suspect]
     Indication: OSTEOPOROSIS POSTMENOPAUSAL
     Dosage: UNK
     Dates: start: 20100813
  2. LACTULOSE STADA [Concomitant]
  3. KALINOR                            /00031402/ [Concomitant]
  4. ZINKAMIN-FALK [Concomitant]
  5. CLEXANE [Concomitant]
  6. TRYASOL CODEIN [Concomitant]
  7. TEPILTA                            /00115701/ [Concomitant]
  8. VITARENAL [Concomitant]
  9. CHOLSPASMIN [Concomitant]
  10. ANTI PHOSPHAT [Concomitant]
  11. EFFORTIL PLUS [Concomitant]
  12. BICANORM                           /00049401/ [Concomitant]
  13. SPIRONOLACTONE [Concomitant]
  14. OMEPRAZOL                          /00661201/ [Concomitant]
  15. IBUPROFEN [Concomitant]
  16. NOVAMINSULFON [Concomitant]
  17. RENVELA [Concomitant]
  18. CLINDAMYCIN [Concomitant]

REACTIONS (2)
  - BLOOD CALCIUM DECREASED [None]
  - BLOOD PARATHYROID HORMONE INCREASED [None]
